FAERS Safety Report 5095150-3 (Version None)
Quarter: 2006Q3

REPORT INFORMATION
  Report Type: 
  Country: None (occurrence: None)
  Receive Date: 20060731
  Receipt Date: 20060413
  Transmission Date: 20061208
  Serious: No
  Sender: FDA-Public Use
  Company Number: 2006PV012127

PATIENT
  Age: 67 Year
  Sex: Female
  Weight: 114.3065 kg

DRUGS (4)
  1. BYETTA [Suspect]
     Indication: DIABETES MELLITUS NON-INSULIN-DEPENDENT
     Dosage: 5 MCG;BID;SC
     Route: 058
     Dates: start: 20060412
  2. HERBAL NAPOL [Concomitant]
  3. PRILOSEC [Concomitant]
  4. NEXIUM [Concomitant]

REACTIONS (4)
  - BLOOD GLUCOSE DECREASED [None]
  - HYPERHIDROSIS [None]
  - INCREASED APPETITE [None]
  - MEDICATION ERROR [None]
